FAERS Safety Report 4920381-X (Version None)
Quarter: 2006Q1

REPORT INFORMATION
  Report Type: 
  Country: None (occurrence: None)
  Receive Date: 20060113
  Receipt Date: 20050919
  Transmission Date: 20060701
  Serious: No
  Sender: FDA-Public Use
  Company Number: 2005SP003049

PATIENT
  Age: 81 Year
  Sex: Male

DRUGS (2)
  1. LUNESTA [Suspect]
     Dosage: 1 MG; HS; ORAL;  2 MG; HS; ORAL
     Route: 048
     Dates: start: 20050901, end: 20050901
  2. LUNESTA [Suspect]
     Dosage: 1 MG; HS; ORAL;  2 MG; HS; ORAL
     Route: 048
     Dates: start: 20050901

REACTIONS (2)
  - DRUG INEFFECTIVE [None]
  - INSOMNIA [None]
